FAERS Safety Report 24432423 (Version 1)
Quarter: 2024Q4

REPORT INFORMATION
  Report Type: Spontaneous
  Country: PL (occurrence: PL)
  Receive Date: 20241014
  Receipt Date: 20241014
  Transmission Date: 20250115
  Serious: Yes (Other)
  Sender: CELLTRION
  Company Number: PL-CELLTRION INC.-2024PL024607

PATIENT

DRUGS (6)
  1. TRASTUZUMAB [Suspect]
     Active Substance: TRASTUZUMAB
     Indication: Breast cancer metastatic
     Dosage: 109 COURSES OF THERAPY HAVE BEEN ADMINISTERED
     Dates: start: 201708, end: 202402
  2. TRASTUZUMAB [Suspect]
     Active Substance: TRASTUZUMAB
     Dosage: CYCLE 113
     Dates: start: 20240626
  3. PERTUZUMAB [Suspect]
     Active Substance: PERTUZUMAB
     Indication: Breast cancer metastatic
     Dosage: 109 COURSES OF THERAPY HAVE BEEN ADMINISTERED
     Dates: start: 201708, end: 202402
  4. PERTUZUMAB [Suspect]
     Active Substance: PERTUZUMAB
     Dosage: CYCLE 113
     Dates: start: 20240625
  5. DOCETAXEL [Suspect]
     Active Substance: DOCETAXEL
     Indication: Brain cancer metastatic
     Dosage: 109 COURSES OF THERAPY HAVE BEEN ADMINISTERED
     Dates: start: 201708, end: 202309
  6. DOCETAXEL [Suspect]
     Active Substance: DOCETAXEL
     Dosage: CYCLE 113
     Dates: start: 20240625

REACTIONS (1)
  - Pulmonary mass [Unknown]

NARRATIVE: CASE EVENT DATE: 20230901
